FAERS Safety Report 14351882 (Version 5)
Quarter: 2023Q1

REPORT INFORMATION
  Report Type: Report from Study
  Country: AR (occurrence: AR)
  Receive Date: 20180104
  Receipt Date: 20230120
  Transmission Date: 20230418
  Serious: Yes (Hospitalization, Other)
  Sender: FDA-Public Use
  Company Number: AR-SHIRE-AR201735681

PATIENT
  Sex: Male

DRUGS (24)
  1. IDURSULFASE [Suspect]
     Active Substance: IDURSULFASE
     Indication: Mucopolysaccharidosis II
     Dosage: 0.5 MILLIGRAM/KILOGRAM, 1/WEEK
     Route: 042
     Dates: start: 20080701
  2. CIPROFLOXACIN [Concomitant]
     Active Substance: CIPROFLOXACIN
     Indication: Otitis media acute
     Dosage: UNK
     Route: 061
     Dates: start: 20131008
  3. CIPROFLOXACIN [Concomitant]
     Active Substance: CIPROFLOXACIN
     Dosage: UNK
     Route: 065
     Dates: start: 20160127, end: 20160218
  4. FLUTICASONE [Concomitant]
     Active Substance: FLUTICASONE
     Indication: Prophylaxis
     Dosage: UNK
     Route: 055
  5. HYDROCORTISONE [Concomitant]
     Active Substance: HYDROCORTISONE
     Indication: Otitis media acute
     Dosage: UNK
     Route: 061
     Dates: start: 20131008
  6. HYDROCORTISONE [Concomitant]
     Active Substance: HYDROCORTISONE
     Indication: Stress
     Dosage: UNK
     Route: 048
     Dates: start: 20210415
  7. FLUTICASONE PROPIONATE [Concomitant]
     Active Substance: FLUTICASONE PROPIONATE
     Indication: Respiratory disorder
     Dosage: UNK
     Route: 065
     Dates: start: 20100723
  8. FLUTICASONE PROPIONATE [Concomitant]
     Active Substance: FLUTICASONE PROPIONATE
     Indication: Respiratory disorder
     Dosage: UNK
     Dates: start: 20100723
  9. DEXAMETHASONE [Concomitant]
     Active Substance: DEXAMETHASONE
     Indication: Respiratory disorder
     Dosage: UNK
     Route: 065
     Dates: start: 20110909, end: 20110909
  10. ALBUTEROL [Concomitant]
     Active Substance: ALBUTEROL
     Indication: Respiratory disorder
     Dosage: UNK
     Route: 065
     Dates: start: 20110909, end: 20110909
  11. AMOXICILLIN [Concomitant]
     Active Substance: AMOXICILLIN
     Indication: Respiratory disorder
     Dosage: UNK
     Route: 065
     Dates: start: 20110909, end: 20110909
  12. AMOXICILLIN [Concomitant]
     Active Substance: AMOXICILLIN
     Indication: Tooth extraction
     Dosage: UNK
     Route: 065
     Dates: start: 20111007, end: 20111013
  13. AMOXICILLIN [Concomitant]
     Active Substance: AMOXICILLIN
     Indication: Tympanic membrane perforation
     Dosage: UNK
     Route: 048
     Dates: start: 20210412
  14. IBUPROFEN [Concomitant]
     Active Substance: IBUPROFEN
     Indication: Tooth extraction
     Dosage: UNK
     Route: 048
     Dates: start: 20111007, end: 20111013
  15. CEFUROXIME [Concomitant]
     Active Substance: CEFUROXIME
     Indication: Otitis media acute
     Dosage: UNK
     Route: 061
     Dates: start: 20131008
  16. CLAVULANIC ACID [Concomitant]
     Active Substance: CLAVULANIC ACID
     Indication: Tympanic membrane perforation
     Dosage: UNK
     Route: 048
     Dates: start: 20210412
  17. POLYETHYLENE GLYCOL [Concomitant]
     Active Substance: POLYETHYLENE GLYCOL
     Indication: Constipation
     Dosage: UNK
     Route: 048
     Dates: start: 20210413
  18. OMEPRAZOLE [Concomitant]
     Active Substance: OMEPRAZOLE
     Indication: Gastritis
     Dosage: UNK
     Route: 048
     Dates: start: 20210413
  19. SIMETHICONE (DIMETHICONE) [Concomitant]
     Active Substance: DIMETHICONE
     Indication: Gastritis
     Dosage: UNK
     Route: 048
     Dates: start: 20210413
  20. DOMPERIDONE [Concomitant]
     Active Substance: DOMPERIDONE
     Indication: Gastritis
     Dosage: UNK
     Route: 048
     Dates: start: 20210413
  21. TRIMEBUTINE [Concomitant]
     Active Substance: TRIMEBUTINE
     Indication: Constipation
     Dosage: UNK
     Route: 048
     Dates: start: 20210413
  22. LEVETIRACETAM [Concomitant]
     Active Substance: LEVETIRACETAM
     Dosage: UNK
     Route: 048
     Dates: start: 20210415
  23. DIAZEPAM [Concomitant]
     Active Substance: DIAZEPAM
     Indication: Quadriparesis
     Dosage: UNK
     Route: 048
     Dates: start: 20210415
  24. VITAMIN D [Concomitant]
     Active Substance: VITAMIN D NOS
     Indication: Prophylaxis
     Dosage: UNK
     Route: 048
     Dates: start: 20210415

REACTIONS (1)
  - Hydrocephalus [Recovered/Resolved]

NARRATIVE: CASE EVENT DATE: 20160118
